FAERS Safety Report 10621517 (Version 1)
Quarter: 2014Q4

REPORT INFORMATION
  Report Type: Spontaneous
  Country: US (occurrence: None)
  Receive Date: 20141126
  Receipt Date: 20141126
  Transmission Date: 20150529
  Serious: Yes (Disabling)
  Sender: FDA-Public Use
  Company Number: None

PATIENT
  Age: 68 Year
  Sex: Male
  Weight: 59.88 kg

DRUGS (2)
  1. GABAPENTIN. [Suspect]
     Active Substance: GABAPENTIN
     Indication: INSOMNIA
     Dosage: 1 PILL
     Route: 048
     Dates: start: 20131001, end: 20141102
  2. GABAPENTIN. [Suspect]
     Active Substance: GABAPENTIN
     Indication: ANXIETY
     Dosage: 1 PILL
     Route: 048
     Dates: start: 20131001, end: 20141102

REACTIONS (3)
  - Dysarthria [None]
  - Aphasia [None]
  - Dyskinesia [None]

NARRATIVE: CASE EVENT DATE: 20141102
